FAERS Safety Report 7801725-8 (Version None)
Quarter: 2011Q4

REPORT INFORMATION
  Report Type: 
  Country: None (occurrence: None)
  Receive Date: 20111005
  Receipt Date: 20110915
  Transmission Date: 20120403
  Serious: Yes (Hospitalization)
  Sender: FDA-Public Use
  Company Number: 2011PROUSA00634

PATIENT
  Age: 66 Year
  Sex: Male
  Weight: 138.3 kg

DRUGS (10)
  1. ZETRA (TETRACYCLINE HYDROCHLORIDE) [Concomitant]
  2. LUPRON [Concomitant]
  3. PROVENGE [Suspect]
     Indication: PROSTATE CANCER METASTATIC
     Dosage: 250ML, SINGLE, INTRAVENOUS
     Route: 042
     Dates: start: 20110829, end: 20110829
  4. GLUCOPHAGE [Concomitant]
  5. LESCOL [Concomitant]
  6. ACTOS [Concomitant]
  7. ASPIRIN [Concomitant]
  8. LISINOPRIL [Concomitant]
  9. NORVASC [Concomitant]
  10. GLUCOTROL [Concomitant]

REACTIONS (2)
  - DEVICE RELATED INFECTION [None]
  - LOSS OF CONSCIOUSNESS [None]
